FAERS Safety Report 21451442 (Version 1)
Quarter: 2022Q4

REPORT INFORMATION
  Report Type: Spontaneous
  Country: US (occurrence: US)
  Receive Date: 20221013
  Receipt Date: 20221013
  Transmission Date: 20230112
  Serious: No
  Sender: FDA-Public Use
  Company Number: US-Indivior Limited-INDV-134628-2022

PATIENT
  Sex: Male

DRUGS (1)
  1. SUBLOCADE [Suspect]
     Active Substance: BUPRENORPHINE
     Indication: Drug dependence
     Dosage: 300 MILLIGRAM, QMO
     Route: 058
     Dates: start: 20220613

REACTIONS (4)
  - Product administered at inappropriate site [Recovered/Resolved]
  - Injection site pain [Recovering/Resolving]
  - Injection site cellulitis [Unknown]
  - Somnolence [Unknown]

NARRATIVE: CASE EVENT DATE: 20220601
